FAERS Safety Report 9595133 (Version 2)
Quarter: 2013Q4

REPORT INFORMATION
  Report Type: Spontaneous
  Country: US (occurrence: US)
  Receive Date: 20131004
  Receipt Date: 20131018
  Transmission Date: 20140711
  Serious: Yes (Other)
  Sender: FDA-Public Use
  Company Number: US-BAYER-2013-119668

PATIENT
  Age: 28 Year
  Sex: Female

DRUGS (5)
  1. YAZ [Suspect]
  2. YASMIN [Suspect]
  3. NEXIUM [Concomitant]
  4. MOTRIN [Concomitant]
     Indication: PAIN
  5. IBUPROFEN [Concomitant]

REACTIONS (4)
  - Pulmonary embolism [Recovered/Resolved]
  - Injury [Recovered/Resolved]
  - Pain [None]
  - Pain [Recovered/Resolved]
